FAERS Safety Report 21474377 (Version 1)
Quarter: 2022Q4

REPORT INFORMATION
  Report Type: Report from Study
  Country: US (occurrence: US)
  Receive Date: 20221018
  Receipt Date: 20221018
  Transmission Date: 20230113
  Serious: Yes (Other)
  Sender: FDA-Public Use
  Company Number: US-BAUSCH-BL-2022-023685

PATIENT
  Age: 86 Year
  Sex: Male

DRUGS (1)
  1. TARGRETIN [Suspect]
     Active Substance: BEXAROTENE
     Indication: Product used for unknown indication
     Dosage: 8 CAPSULES A DAY
     Route: 065

REACTIONS (3)
  - Intestinal obstruction [Unknown]
  - Product use issue [Unknown]
  - Product availability issue [Unknown]
